FAERS Safety Report 8854632 (Version 1)
Quarter: 2012Q4

REPORT INFORMATION
  Report Type: 
  Country: US (occurrence: US)
  Receive Date: 20121023
  Receipt Date: 20121023
  Transmission Date: 20130627
  Serious: No
  Sender: FDA-Public Use
  Company Number: US-MYLANLABS-2012S1015829

PATIENT
  Age: 54 Year
  Sex: Female

DRUGS (4)
  1. BUPROPION HYDROCHLORIDE EXTENDED RELEASE (XL) [Suspect]
     Indication: DEPRESSION
     Route: 048
     Dates: start: 201204, end: 20120423
  2. ALENDRONATE [Concomitant]
     Indication: OSTEOPOROSIS
     Dosage: taken for one year
  3. ATORVASTATIN [Concomitant]
     Indication: BLOOD CHOLESTEROL INCREASED
     Dosage: taken for one year
  4. LYRICA [Concomitant]
     Indication: FIBROMYALGIA

REACTIONS (5)
  - Drug ineffective [Recovered/Resolved]
  - Depression [Recovered/Resolved]
  - Lethargy [Recovered/Resolved]
  - Confusional state [Recovered/Resolved]
  - Diarrhoea [Recovered/Resolved]
